FAERS Safety Report 8523210-0 (Version None)
Quarter: 2012Q3

REPORT INFORMATION
  Report Type: 
  Country: None (occurrence: None)
  Receive Date: 20120713
  Receipt Date: 20120713
  Transmission Date: 20120928
  Serious: Yes (Other)
  Sender: FDA-Public Use
  Company Number: None

PATIENT
  Age: 20 Year
  Sex: Female
  Weight: 68.0396 kg

DRUGS (1)
  1. DIFFERIN [Suspect]
     Indication: ACNE
     Dosage: PEA-SIZE AMOUNT TO ENTIRE FACE AT BEDTIME TOP
     Route: 061
     Dates: start: 20120703, end: 20120708

REACTIONS (3)
  - PRURITUS [None]
  - PAIN [None]
  - INSOMNIA [None]
